FAERS Safety Report 7994094-4 (Version None)
Quarter: 2011Q4

REPORT INFORMATION
  Report Type: 
  Country: None (occurrence: None)
  Receive Date: 20111220
  Receipt Date: 20111207
  Transmission Date: 20120403
  Serious: Yes (Other)
  Sender: FDA-Public Use
  Company Number: CA-JNJFOC-20110301640

PATIENT
  Sex: Male
  Weight: 69 kg

DRUGS (2)
  1. REMICADE [Suspect]
     Indication: CROHN'S DISEASE
     Dosage: 100 MG/VIAL  DOSE ALSO REPORTED AS 400 MG Q8W
     Route: 042
     Dates: start: 20091101
  2. IMURAN [Concomitant]
     Route: 048

REACTIONS (2)
  - GASTROINTESTINAL DISORDER [None]
  - FISTULA [None]
